FAERS Safety Report 6411972-8 (Version None)
Quarter: 2009Q4

REPORT INFORMATION
  Report Type: 
  Country: None (occurrence: None)
  Receive Date: 20091023
  Receipt Date: 20091015
  Transmission Date: 20100525
  Serious: Yes (Hospitalization)
  Sender: FDA-Public Use
  Company Number: JP-ASTRAZENECA-2009SE11071

PATIENT
  Age: 81 Year
  Sex: Female
  Weight: 63 kg

DRUGS (8)
  1. ECARD [Suspect]
     Indication: HYPERTENSION
     Route: 048
     Dates: start: 20090413, end: 20090809
  2. TAKEPRON OD TABLETS 15 [Concomitant]
     Indication: REFLUX OESOPHAGITIS
     Route: 048
  3. TOWARAT CR [Concomitant]
     Indication: HYPERTENSION
     Route: 048
  4. ASPIRIN [Concomitant]
     Indication: CEREBRAL INFARCTION
     Route: 048
  5. URSO 250 [Concomitant]
     Indication: HEPATIC FUNCTION ABNORMAL
     Route: 048
  6. ELASTASE [Concomitant]
     Indication: DYSPEPSIA
     Route: 048
  7. NEUROVITAN [Concomitant]
     Indication: CHEILITIS
     Route: 048
  8. AMOBAN [Concomitant]
     Indication: INSOMNIA
     Route: 048

REACTIONS (2)
  - DEHYDRATION [None]
  - HYPONATRAEMIA [None]
